FAERS Safety Report 10866639 (Version 1)
Quarter: 2015Q1

REPORT INFORMATION
  Report Type: Spontaneous
  Country: US (occurrence: None)
  Receive Date: 20150220
  Receipt Date: 20150220
  Transmission Date: 20150721
  Serious: No
  Sender: FDA-Public Use
  Company Number: None

PATIENT
  Age: 57 Year
  Sex: Female
  Weight: 99.79 kg

DRUGS (11)
  1. LOSARTON [Concomitant]
  2. MULTIVITAMIN [Concomitant]
     Active Substance: VITAMINS
  3. ESTRADIOL. [Concomitant]
     Active Substance: ESTRADIOL
  4. DIOXIDE [Concomitant]
  5. LEXAPRO [Concomitant]
     Active Substance: ESCITALOPRAM OXALATE
  6. MIRAPEX [Concomitant]
     Active Substance: PRAMIPEXOLE DIHYDROCHLORIDE
  7. OMNOPPRAZOLE [Concomitant]
  8. BELVIQ [Suspect]
     Active Substance: LORCASERIN HYDROCHLORIDE
     Indication: WEIGHT CONTROL
     Dosage: DATE OF USE: 15 FAYS, 1 PILL, TWICE DAILY, TAKEN BY MOUTH
     Route: 048
  9. SYMBACORT [Concomitant]
  10. ALEVE [Concomitant]
     Active Substance: NAPROXEN SODIUM
  11. GLUCOSAMINE CHOROTIN [Concomitant]

REACTIONS (6)
  - Pruritus [None]
  - Back pain [None]
  - Constipation [None]
  - Therapy cessation [None]
  - Arthralgia [None]
  - Cough [None]

NARRATIVE: CASE EVENT DATE: 20150208
